FAERS Safety Report 9108671 (Version 1)
Quarter: 2013Q1

REPORT INFORMATION
  Report Type: Spontaneous
  Country: US (occurrence: US)
  Receive Date: 20130222
  Receipt Date: 20130222
  Transmission Date: 20140127
  Serious: Yes (Other)
  Sender: FDA-Public Use
  Company Number: US-PFIZER INC-2013064865

PATIENT
  Sex: Female

DRUGS (1)
  1. GEODON [Suspect]
     Dosage: 20 MG, UNK
     Dates: start: 2008

REACTIONS (4)
  - Arthropathy [Unknown]
  - Anxiety [Unknown]
  - Insomnia [Unknown]
  - Dermatitis contact [Unknown]
